FAERS Safety Report 7413156-3 (Version None)
Quarter: 2011Q2

REPORT INFORMATION
  Report Type: 
  Country: None (occurrence: None)
  Receive Date: 20110413
  Receipt Date: 20110408
  Transmission Date: 20111010
  Serious: Yes (Hospitalization)
  Sender: FDA-Public Use
  Company Number: CN-ABBOTT-11P-035-0717348-00

PATIENT

DRUGS (1)
  1. HYTRIN [Suspect]
     Indication: HYPERTENSION
     Route: 048

REACTIONS (1)
  - CARDIAC FAILURE [None]
